FAERS Safety Report 18666268 (Version 1)
Quarter: 2020Q4

REPORT INFORMATION
  Report Type: Report from Study
  Country: IN (occurrence: IN)
  Receive Date: 20201226
  Receipt Date: 20201226
  Transmission Date: 20210114
  Serious: Yes (Death, Hospitalization)
  Sender: FDA-Public Use
  Company Number: NVSC2019IN076106

PATIENT
  Age: 73 Year
  Sex: Male

DRUGS (1)
  1. VYMADA [Suspect]
     Active Substance: SACUBITRIL\VALSARTAN
     Indication: CARDIAC FAILURE CHRONIC
     Dosage: 0.5 DF (100 MG), BID
     Route: 048
     Dates: start: 20191210

REACTIONS (3)
  - Wrong technique in product usage process [Unknown]
  - Dyspnoea [Fatal]
  - Product prescribing error [Unknown]

NARRATIVE: CASE EVENT DATE: 20191210
